FAERS Safety Report 9016512 (Version 1)
Quarter: 2013Q1

REPORT INFORMATION
  Report Type: Spontaneous
  Country: US (occurrence: US)
  Receive Date: 20130116
  Receipt Date: 20130116
  Transmission Date: 20140127
  Serious: Yes (Other)
  Sender: FDA-Public Use
  Company Number: US-TEVA-380523USA

PATIENT
  Sex: Female

DRUGS (1)
  1. COPAXONE [Suspect]
     Indication: MULTIPLE SCLEROSIS
     Route: 058
     Dates: start: 20010101

REACTIONS (4)
  - Suicidal ideation [Not Recovered/Not Resolved]
  - Major depression [Not Recovered/Not Resolved]
  - Insomnia [Unknown]
  - Disturbance in attention [Unknown]
